FAERS Safety Report 10021035 (Version 1)
Quarter: 2014Q1

REPORT INFORMATION
  Report Type: Report from Study
  Country: US (occurrence: US)
  Receive Date: 20140319
  Receipt Date: 20140319
  Transmission Date: 20141002
  Serious: Yes (Other)
  Sender: FDA-Public Use
  Company Number: US-ASTELLAS-2014US002691

PATIENT
  Sex: Female

DRUGS (2)
  1. ERLOTINIB TABLET [Suspect]
     Indication: LUNG NEOPLASM MALIGNANT
     Dosage: UNK
     Route: 048
     Dates: start: 20140220
  2. ERLOTINIB TABLET [Suspect]
     Indication: NERVOUS SYSTEM DISORDER

REACTIONS (9)
  - Off label use [Unknown]
  - Pulmonary thrombosis [Unknown]
  - Fall [Unknown]
  - Performance status decreased [Unknown]
  - Thrombosis [Unknown]
  - Head injury [Unknown]
  - Dizziness [Unknown]
  - Malaise [Unknown]
  - Diarrhoea [Unknown]
